FAERS Safety Report 10364464 (Version 1)
Quarter: 2014Q3

REPORT INFORMATION
  Report Type: Spontaneous
  Country: US (occurrence: None)
  Receive Date: 20140801
  Receipt Date: 20140801
  Transmission Date: 20150326
  Serious: Yes (Other)
  Sender: FDA-Public Use
  Company Number: 2014PAC00027

PATIENT
  Age: 90 Year

DRUGS (2)
  1. CIPROFLOXACIN. [Suspect]
     Active Substance: CIPROFLOXACIN
     Indication: PSEUDOMONAS INFECTION
  2. METHOTREXATE [Suspect]
     Active Substance: METHOTREXATE
     Indication: PSORIASIS

REACTIONS (12)
  - Toxicity to various agents [None]
  - Abdominal discomfort [None]
  - Skin ulcer [None]
  - Vomiting [None]
  - Mouth ulceration [None]
  - Platelet count decreased [None]
  - Alanine aminotransferase increased [None]
  - Drug interaction [None]
  - Nausea [None]
  - Pain [None]
  - Oral pain [None]
  - Aspartate aminotransferase increased [None]

NARRATIVE: CASE EVENT DATE: 20140730
